FAERS Safety Report 13087272 (Version 1)
Quarter: 2017Q1

REPORT INFORMATION
  Report Type: Report from Study
  Country: None (occurrence: DO)
  Receive Date: 20170105
  Receipt Date: 20170105
  Transmission Date: 20170428
  Serious: Yes (Other)
  Sender: FDA-Public Use
  Company Number: DO-ABBVIE-16K-279-1637767-00

PATIENT
  Age: 54 Year
  Sex: Male

DRUGS (2)
  1. HUMIRA [Suspect]
     Active Substance: ADALIMUMAB
     Indication: RHEUMATOID ARTHRITIS
     Route: 058
     Dates: start: 20160331, end: 201604
  2. ARCOXIA [Concomitant]
     Active Substance: ETORICOXIB
     Indication: INFLAMMATION
     Route: 048
     Dates: start: 20160519

REACTIONS (3)
  - Mycobacterium tuberculosis complex test positive [Unknown]
  - Tuberculin test positive [Recovering/Resolving]
  - Spinal osteoarthritis [Unknown]

NARRATIVE: CASE EVENT DATE: 20160405
